FAERS Safety Report 16539510 (Version 4)
Quarter: 2019Q3

REPORT INFORMATION
  Report Type: Report from Study
  Country: US (occurrence: US)
  Receive Date: 20190708
  Receipt Date: 20190805
  Transmission Date: 20191004
  Serious: Yes (Hospitalization, Other)
  Sender: FDA-Public Use
  Company Number: US-BAYER-2019-121985

PATIENT
  Age: 70 Year
  Sex: Female
  Weight: 79.82 kg

DRUGS (24)
  1. CLOBETASOL [Concomitant]
     Active Substance: CLOBETASOL
  2. STIVARGA [Suspect]
     Active Substance: REGORAFENIB
     Indication: COLON CANCER
     Dosage: 160 MG, QD (FOR 21 DAYS)
     Route: 048
     Dates: start: 20190619
  3. CEPHALEXIN [CEFALEXIN] [Concomitant]
     Active Substance: CEPHALEXIN
  4. BUPROPION HCL SANDOZ RETARD [Concomitant]
  5. METFORMIN HCL [Concomitant]
     Active Substance: METFORMIN HYDROCHLORIDE
  6. ROXIN [LEVOTHYROXINE SODIUM] [Concomitant]
  7. MECLIZINE HCL [Concomitant]
     Active Substance: MECLIZINE HYDROCHLORIDE
     Dosage: UNK
  8. GABAPENTIN. [Concomitant]
     Active Substance: GABAPENTIN
  9. MAGNESIUM [Concomitant]
     Active Substance: MAGNESIUM
  10. GLIMEPIRIDE. [Concomitant]
     Active Substance: GLIMEPIRIDE
  11. PRAVASTATINE SODIUM ACCORD [Concomitant]
     Active Substance: PRAVASTATIN SODIUM
     Dosage: UNK
  12. LACTULOSE. [Concomitant]
     Active Substance: LACTULOSE
  13. FIRST BXN MOUTHWASH [Concomitant]
     Active Substance: DIPHENHYDRAMINE HYDROCHLORIDE\LIDOCAINE HYDROCHLORIDE\NYSTATIN
  14. DEXAMETHASONE. [Concomitant]
     Active Substance: DEXAMETHASONE
     Dosage: UNK
  15. WELLBUTRIN [Concomitant]
     Active Substance: BUPROPION HYDROCHLORIDE
  16. CIPROFLOXACIN HCL [Concomitant]
     Active Substance: CIPROFLOXACIN HYDROCHLORIDE
  17. CEPHALEXIN [CEFALEXIN] [Concomitant]
     Active Substance: CEPHALEXIN
  18. DIPHENOXYLATE HCL + ATROPINE SULFATE [Concomitant]
     Active Substance: ATROPINE SULFATE\DIPHENOXYLATE HYDROCHLORIDE
  19. ONDANSETRON ODT DRLA [Concomitant]
     Active Substance: ONDANSETRON
  20. PANTOPRAZOLE SODIUM. [Concomitant]
     Active Substance: PANTOPRAZOLE SODIUM
  21. BENAZEPRIL HCL [Concomitant]
     Active Substance: BENAZEPRIL HYDROCHLORIDE
  22. PROPIONATE [Concomitant]
  23. METOPROLOL TARTRATE. [Concomitant]
     Active Substance: METOPROLOL TARTRATE
  24. VALACYCLOVIR [Concomitant]
     Active Substance: VALACYCLOVIR HYDROCHLORIDE

REACTIONS (14)
  - Hospitalisation [Unknown]
  - Weight decreased [Unknown]
  - Constipation [Not Recovered/Not Resolved]
  - Dysphonia [Unknown]
  - Diarrhoea [Recovering/Resolving]
  - Oral pain [Recovered/Resolved with Sequelae]
  - Cystitis [Unknown]
  - Dehydration [Unknown]
  - Tongue discomfort [Recovering/Resolving]
  - Decreased appetite [Unknown]
  - Blood magnesium decreased [Unknown]
  - Dysphagia [Unknown]
  - Oral pain [Unknown]
  - Stomatitis [Recovering/Resolving]

NARRATIVE: CASE EVENT DATE: 2019
